FAERS Safety Report 11800668 (Version 1)
Quarter: 2015Q4

REPORT INFORMATION
  Report Type: Spontaneous
  Country: US (occurrence: US)
  Receive Date: 20151204
  Receipt Date: 20151204
  Transmission Date: 20160305
  Serious: Yes (Hospitalization)
  Sender: FDA-Public Use
  Company Number: US-PAR PHARMACEUTICAL COMPANIES-2015SCPR014516

PATIENT

DRUGS (4)
  1. LISINOPRIL. [Concomitant]
     Active Substance: LISINOPRIL
     Indication: HYPERTENSION
     Dosage: HALF TABLET, UNKNOWN
     Route: 048
  2. PROPAFENONE HCL ER [Suspect]
     Active Substance: PROPAFENONE
     Indication: HEART RATE ABNORMAL
     Dosage: 1 DF, BID
     Route: 048
  3. LEVOTHYROXINE. [Concomitant]
     Active Substance: LEVOTHYROXINE
     Indication: HYPOTHYROIDISM
     Dosage: UNK, OD
     Route: 048
  4. SIMVASTATIN. [Concomitant]
     Active Substance: SIMVASTATIN
     Indication: PRODUCT USED FOR UNKNOWN INDICATION
     Dosage: UNK, UNKNOWN
     Route: 065
     Dates: end: 201511

REACTIONS (4)
  - Malaise [Unknown]
  - Heart rate increased [Recovered/Resolved]
  - Product use issue [Unknown]
  - Product substitution issue [None]
